FAERS Safety Report 20618218 (Version 2)
Quarter: 2022Q2

REPORT INFORMATION
  Report Type: Spontaneous
  Country: US (occurrence: US)
  Receive Date: 20220321
  Receipt Date: 20220420
  Transmission Date: 20220721
  Serious: No
  Sender: FDA-Public Use
  Company Number: US-PFIZER INC-202200300138

PATIENT
  Sex: Female

DRUGS (1)
  1. TOVIAZ [Suspect]
     Active Substance: FESOTERODINE FUMARATE
     Indication: Bladder spasm
     Dosage: UNK
     Dates: start: 20220218

REACTIONS (5)
  - Product use complaint [Unknown]
  - Oropharyngeal discomfort [Unknown]
  - Tongue discomfort [Unknown]
  - Dysphagia [Unknown]
  - Off label use [Unknown]

NARRATIVE: CASE EVENT DATE: 20220201
